FAERS Safety Report 19900867 (Version 1)
Quarter: 2021Q3

REPORT INFORMATION
  Report Type: Spontaneous
  Country: US (occurrence: US)
  Receive Date: 20210930
  Receipt Date: 20210930
  Transmission Date: 20211014
  Serious: Yes (Hospitalization)
  Sender: FDA-Public Use
  Company Number: None

PATIENT
  Age: 15 Year
  Sex: Male
  Weight: 74.7 kg

DRUGS (3)
  1. CISPLATIN. [Suspect]
     Active Substance: CISPLATIN
     Dates: end: 20210919
  2. BLEOMYCIN [Suspect]
     Active Substance: BLEOMYCIN SULFATE
     Dosage: ?          OTHER DOSE:58 UNIT;?
     Dates: end: 20210922
  3. ETOPOSIDE (VP?16) [Suspect]
     Active Substance: ETOPOSIDE
     Dates: end: 20210919

REACTIONS (2)
  - Pyrexia [None]
  - Chills [None]

NARRATIVE: CASE EVENT DATE: 20210922
